FAERS Safety Report 9697193 (Version 1)
Quarter: 2013Q4

REPORT INFORMATION
  Report Type: Spontaneous
  Country: CA (occurrence: CA)
  Receive Date: 20131120
  Receipt Date: 20131120
  Transmission Date: 20140711
  Serious: Yes (Other)
  Sender: FDA-Public Use
  Company Number: CA-AMGEN-CANSP2011070520

PATIENT
  Age: 80 Year
  Sex: Female
  Weight: 54 kg

DRUGS (13)
  1. PROLIA [Suspect]
     Indication: PRODUCT USED FOR UNKNOWN INDICATION
     Dosage: 60 MG, Q6MO
     Route: 058
  2. ADVAIR [Concomitant]
  3. CLOPIDOGREL [Concomitant]
  4. ENALAPRIL [Concomitant]
  5. FUROSEMIDE [Concomitant]
  6. LORAZEPAM [Concomitant]
  7. METOPROLOL [Concomitant]
  8. NIFEDIPINE [Concomitant]
  9. PANTOPRAZOLE [Concomitant]
  10. PREDNISOLONE [Concomitant]
  11. SIMVASTATIN [Concomitant]
  12. SPIRIVA [Concomitant]
  13. VENTOLIN                           /00139501/ [Concomitant]

REACTIONS (6)
  - Vomiting [Unknown]
  - Acidosis [Unknown]
  - Hypophagia [Unknown]
  - Renal failure acute [Unknown]
  - Hypotension [Unknown]
  - Blood calcium decreased [Unknown]
